FAERS Safety Report 24393603 (Version 1)
Quarter: 2024Q4

REPORT INFORMATION
  Report Type: Spontaneous
  Country: FR (occurrence: FR)
  Receive Date: 20241003
  Receipt Date: 20241003
  Transmission Date: 20250115
  Serious: Yes (Other)
  Sender: SANDOZ
  Company Number: None

PATIENT
  Age: 61 Year
  Sex: Female
  Weight: 40 kg

DRUGS (2)
  1. VORICONAZOLE [Suspect]
     Active Substance: VORICONAZOLE
     Dosage: RELAIS PER OS 200 MG MATIN ET SOIR
     Route: 048
  2. VORICONAZOLE [Suspect]
     Active Substance: VORICONAZOLE
     Indication: Aspergillus infection
     Dosage: 6 MG/KG (J1) PUIS 4 MG/KG ? J2 PUIS
     Route: 042
     Dates: start: 20240712, end: 20240815

REACTIONS (3)
  - Deafness bilateral [Not Recovered/Not Resolved]
  - Ototoxicity [Not Recovered/Not Resolved]
  - Deafness [Not Recovered/Not Resolved]

NARRATIVE: CASE EVENT DATE: 20240719
